FAERS Safety Report 6456857-6 (Version None)
Quarter: 2009Q4

REPORT INFORMATION
  Report Type: 
  Country: None (occurrence: None)
  Receive Date: 20091124
  Receipt Date: 20091124
  Transmission Date: 20100525
  Serious: Yes (Hospitalization, Other)
  Sender: FDA-Public Use
  Company Number: None

PATIENT
  Age: 35 Year
  Sex: Female
  Weight: 113.3993 kg

DRUGS (3)
  1. YAZ [Suspect]
     Indication: ACNE
     Dosage: ONCE A DAY DAILY PO
     Route: 048
     Dates: start: 20080710, end: 20091023
  2. YAZ [Suspect]
     Indication: MENSTRUAL CYCLE MANAGEMENT
     Dosage: ONCE A DAY DAILY PO
     Route: 048
     Dates: start: 20080710, end: 20091023
  3. YAZ [Suspect]
     Indication: PREMENSTRUAL SYNDROME
     Dosage: ONCE A DAY DAILY PO
     Route: 048
     Dates: start: 20080710, end: 20091023

REACTIONS (3)
  - CARDIAC MURMUR [None]
  - PANIC ATTACK [None]
  - VENTRICULAR EXTRASYSTOLES [None]
